FAERS Safety Report 5170026-1 (Version None)
Quarter: 2006Q4

REPORT INFORMATION
  Report Type: 
  Country: None (occurrence: None)
  Receive Date: 20061212
  Receipt Date: 20050609
  Transmission Date: 20070319
  Serious: Yes (Hospitalization)
  Sender: FDA-Public Use
  Company Number: DE-ELI_LILLY_AND_COMPANY-DE_050616142

PATIENT
  Age: 65 Year
  Sex: Male
  Weight: 76 kg

DRUGS (4)
  1. CIALIS [Suspect]
     Indication: PROSTATECTOMY
     Dosage: 20 MG, UNKNOWN
     Route: 048
     Dates: start: 20040601, end: 20041001
  2. THYROXIN [Concomitant]
     Dosage: 100 MG, UNKNOWN
     Route: 048
     Dates: start: 20040601, end: 20041001
  3. ASPIRIN [Concomitant]
  4. MAGNETIC FIELD THERAPY [Concomitant]
     Dosage: UNK, UNKNOWN

REACTIONS (1)
  - EPILEPSY [None]
